FAERS Safety Report 6712941-0 (Version None)
Quarter: 2010Q2

REPORT INFORMATION
  Report Type: 
  Country: None (occurrence: None)
  Receive Date: 20100506
  Receipt Date: 20100427
  Transmission Date: 20101027
  Serious: Yes (Other)
  Sender: FDA-Public Use
  Company Number: US-BRISTOL-MYERS SQUIBB COMPANY-15083249

PATIENT
  Age: 71 Year
  Sex: Male

DRUGS (1)
  1. MITOMYCIN [Suspect]

REACTIONS (1)
  - BLEBITIS [None]
